FAERS Safety Report 7530340-9 (Version None)
Quarter: 2011Q2

REPORT INFORMATION
  Report Type: 
  Country: None (occurrence: None)
  Receive Date: 20110607
  Receipt Date: 20110525
  Transmission Date: 20111010
  Serious: Yes (Hospitalization)
  Sender: FDA-Public Use
  Company Number: US-UCBSA-033909

PATIENT
  Sex: Male
  Weight: 46.26 kg

DRUGS (5)
  1. LOPERAMIDE [Concomitant]
     Dosage: QD
     Dates: start: 20101208, end: 20101211
  2. CIMZIA [Suspect]
     Indication: CROHN'S DISEASE
     Route: 057
     Dates: start: 20100122, end: 20100219
  3. CIMZIA [Suspect]
     Route: 058
     Dates: start: 20100323
  4. PREDNISONE [Concomitant]
     Dates: start: 20100420
  5. IBUPROFEN [Concomitant]

REACTIONS (1)
  - ILEOSTOMY CLOSURE [None]
